FAERS Safety Report 25829123 (Version 2)
Quarter: 2025Q4

REPORT INFORMATION
  Report Type: Spontaneous
  Country: US (occurrence: US)
  Receive Date: 20250922
  Receipt Date: 20251010
  Transmission Date: 20260117
  Serious: Yes (Death, Life-Threatening, Hospitalization, Other)
  Sender: ALKEM
  Company Number: None

PATIENT
  Age: 57 Year
  Sex: Male

DRUGS (3)
  1. MYCOPHENOLATE MOFETIL [Suspect]
     Active Substance: MYCOPHENOLATE MOFETIL
     Indication: Immunosuppressant drug therapy
     Dosage: UNK
     Route: 065
  2. TACROLIMUS [Suspect]
     Active Substance: TACROLIMUS
     Indication: Immunosuppressant drug therapy
     Dosage: UNK
     Route: 065
  3. TACROLIMUS [Suspect]
     Active Substance: TACROLIMUS
     Dosage: UNK (RECHALLENGE DOSE)
     Route: 065

REACTIONS (9)
  - Respiratory failure [Fatal]
  - Immune reconstitution inflammatory syndrome [Fatal]
  - Rhodococcus infection [Fatal]
  - Endocarditis bacterial [Fatal]
  - Bacteraemia [Fatal]
  - Pneumonia necrotising [Fatal]
  - Pseudomonas infection [Unknown]
  - Staphylococcal infection [Unknown]
  - Bacterial infection [Unknown]
